FAERS Safety Report 7676912-2 (Version None)
Quarter: 2011Q3

REPORT INFORMATION
  Report Type: 
  Country: None (occurrence: None)
  Receive Date: 20110811
  Receipt Date: 20110802
  Transmission Date: 20111222
  Serious: Yes (Other)
  Sender: FDA-Public Use
  Company Number: PHHY2011JP70823

PATIENT
  Sex: Male
  Weight: 2.184 kg

DRUGS (5)
  1. ROPINIROLE [Suspect]
     Indication: PARKINSON'S DISEASE
     Dosage: MATERNAL DOSE:1.5 MG/DAY
     Route: 064
  2. CARBIDOPA + LEVODOPA [Suspect]
     Indication: PARKINSON'S DISEASE
     Dosage: MATERNAL DOSE: 450 MG/DAY
     Route: 064
  3. ENTACAPONE [Suspect]
     Indication: PARKINSON'S DISEASE
     Dosage: MATERNAL DOSE: 400 MG/DAY
     Route: 064
  4. SELEGILINE [Suspect]
     Indication: PARKINSON'S DISEASE
     Dosage: MATERNAL DOSE: 7.5 MG/DAY
     Route: 064
  5. CARBIDOPA + LEVODOPA [Suspect]
     Dosage: 700 MG/ DAY

REACTIONS (3)
  - SMALL FOR DATES BABY [None]
  - MATERNAL EXPOSURE DURING PREGNANCY [None]
  - PREMATURE BABY [None]
